FAERS Safety Report 5637702-5 (Version None)
Quarter: 2008Q1

REPORT INFORMATION
  Report Type: 
  Country: None (occurrence: None)
  Receive Date: 20080220
  Receipt Date: 20080214
  Transmission Date: 20080703
  Serious: Yes (Death, Hospitalization, Other)
  Sender: FDA-Public Use
  Company Number: CLOF-1000077

PATIENT
  Age: 24 Year
  Sex: Male
  Weight: 62.4 kg

DRUGS (15)
  1. CLOFARABINE (CLOFARABINE) SOLUTION FOR INFUSION [Suspect]
     Indication: ACUTE MYELOID LEUKAEMIA
     Dosage: 40 MG/M2, QD, INTRAVENOUS
     Route: 042
     Dates: start: 20080123, end: 20080127
  2. CLOFARABINE (CLOFARABINE) SOLUTION FOR INFUSION [Suspect]
     Indication: BONE MARROW CONDITIONING REGIMEN
     Dosage: 40 MG/M2, QD, INTRAVENOUS
     Route: 042
     Dates: start: 20080123, end: 20080127
  3. CYTARABINE [Suspect]
     Indication: ACUTE MYELOID LEUKAEMIA
     Dosage: 1 G/M2, QD, INTRAVENOUS
     Route: 042
     Dates: start: 20080123, end: 20080127
  4. CYTARABINE [Suspect]
     Indication: BONE MARROW CONDITIONING REGIMEN
     Dosage: 1 G/M2, QD, INTRAVENOUS
     Route: 042
     Dates: start: 20080123, end: 20080127
  5. THYMOGLOBULIN [Suspect]
     Indication: ACUTE MYELOID LEUKAEMIA
     Dosage: 1 MG/M2, ONCE, INTRAVENOUS; 2,5 MG/M2, INTRAVENOUS
     Route: 042
     Dates: start: 20080125, end: 20080125
  6. THYMOGLOBULIN [Suspect]
     Indication: BONE MARROW CONDITIONING REGIMEN
     Dosage: 1 MG/M2, ONCE, INTRAVENOUS; 2,5 MG/M2, INTRAVENOUS
     Route: 042
     Dates: start: 20080125, end: 20080125
  7. THYMOGLOBULIN [Suspect]
     Indication: ACUTE MYELOID LEUKAEMIA
     Dosage: 1 MG/M2, ONCE, INTRAVENOUS; 2,5 MG/M2, INTRAVENOUS
     Route: 042
     Dates: start: 20080126, end: 20080127
  8. THYMOGLOBULIN [Suspect]
     Indication: BONE MARROW CONDITIONING REGIMEN
     Dosage: 1 MG/M2, ONCE, INTRAVENOUS; 2,5 MG/M2, INTRAVENOUS
     Route: 042
     Dates: start: 20080126, end: 20080127
  9. PREDNISOLONE ACETATE [Concomitant]
  10. ACETAMINOPHEN [Concomitant]
  11. ALBUTEROL (SALBUTAMOL SULFATE) [Concomitant]
  12. LORAZEPAM [Concomitant]
  13. COMPAZINE (PROCHLORPERAZINE MALEATE) [Concomitant]
  14. BENZONATATE [Concomitant]
  15. DILAUDID [Concomitant]

REACTIONS (20)
  - ACINETOBACTER INFECTION [None]
  - BACTERIAL INFECTION [None]
  - BLOOD CREATININE INCREASED [None]
  - BLOOD CULTURE POSITIVE [None]
  - CONVULSION [None]
  - ENTEROCOCCAL INFECTION [None]
  - FUNGAL INFECTION [None]
  - GRAND MAL CONVULSION [None]
  - HEADACHE [None]
  - HEMIANOPIA [None]
  - HYPERBILIRUBINAEMIA [None]
  - HYPOTENSION [None]
  - INTRACRANIAL PRESSURE INCREASED [None]
  - MENTAL IMPAIRMENT [None]
  - MULTI-ORGAN FAILURE [None]
  - MUSCULAR WEAKNESS [None]
  - RESPIRATORY FAILURE [None]
  - SEPSIS [None]
  - SEPTIC EMBOLUS [None]
  - STEM CELL TRANSPLANT [None]
